FAERS Safety Report 25866302 (Version 1)
Quarter: 2025Q3

REPORT INFORMATION
  Report Type: Spontaneous
  Country: EU (occurrence: EU)
  Receive Date: 20250930
  Receipt Date: 20250930
  Transmission Date: 20251021
  Serious: Yes (Life-Threatening)
  Sender: MYLAN
  Company Number: None

PATIENT
  Age: 49 Year
  Sex: Male

DRUGS (5)
  1. DEXAMETHASONE [Suspect]
     Active Substance: DEXAMETHASONE
     Indication: General anaesthesia
  2. ROCURONIUM [Suspect]
     Active Substance: ROCURONIUM BROMIDE
     Indication: General anaesthesia
  3. PROPOFOL [Suspect]
     Active Substance: PROPOFOL
     Indication: General anaesthesia
  4. SUFENTANIL [Suspect]
     Active Substance: SUFENTANIL
     Indication: General anaesthesia
  5. LIDOCAINE [Suspect]
     Active Substance: LIDOCAINE
     Indication: General anaesthesia

REACTIONS (1)
  - Anaphylactic shock [Recovered/Resolved]

NARRATIVE: CASE EVENT DATE: 20250904
